FAERS Safety Report 5455128-4 (Version None)
Quarter: 2007Q3

REPORT INFORMATION
  Report Type: 
  Country: None (occurrence: None)
  Receive Date: 20070914
  Receipt Date: 20070903
  Transmission Date: 20080115
  Serious: Yes (Other)
  Sender: FDA-Public Use
  Company Number: CHNY2007GB03068

PATIENT
  Age: 33 Year
  Sex: Male
  Weight: 86 kg

DRUGS (3)
  1. CLEMASTINE HYDROGEN FUMARATE(NCH)(CLEMASTINE HYDROGEN FUMARATE) UNKNOW [Suspect]
     Indication: SEASONAL ALLERGY
     Dosage: 1 MG, BID, ORAL
     Route: 048
     Dates: start: 20070413, end: 20070801
  2. ACRIVASTINE (ACRIVASTINE) [Concomitant]
  3. AZELASTINE (AZELASTINE) [Concomitant]

REACTIONS (2)
  - DEPRESSION [None]
  - MOOD ALTERED [None]
